FAERS Safety Report 23742656 (Version 1)
Quarter: 2024Q2

REPORT INFORMATION
  Report Type: Spontaneous
  Country: US (occurrence: None)
  Receive Date: 20240412
  Receipt Date: 20240412
  Transmission Date: 20240716
  Serious: No
  Sender: FDA-Public Use
  Company Number: None

PATIENT
  Age: 55 Year
  Sex: Female

DRUGS (3)
  1. OTEZLA [Suspect]
     Active Substance: APREMILAST
     Indication: Psoriasis
     Dosage: OTHER FREQUENCY : TITRATING;?
     Route: 048
  2. LISDEXAMFETAMINE [Concomitant]
  3. CALCIPOTRIENE [Concomitant]

REACTIONS (1)
  - Hypersensitivity [None]
